FAERS Safety Report 4489725-X (Version None)
Quarter: 2004Q4

REPORT INFORMATION
  Report Type: 
  Country: None (occurrence: None)
  Receive Date: 20041101
  Receipt Date: 20030605
  Transmission Date: 20050328
  Serious: Yes (Hospitalization, Disabling, Other)
  Sender: FDA-Public Use
  Company Number: US-MERCK-0306USA00634

PATIENT
  Age: 40 Year
  Sex: Female
  Weight: 63 kg

DRUGS (2)
  1. VIOXX [Suspect]
     Indication: ARTHRITIS
     Route: 048
     Dates: end: 20010716
  2. PREMARIN [Concomitant]
     Route: 065

REACTIONS (11)
  - ABDOMINAL PAIN LOWER [None]
  - ADVERSE EVENT [None]
  - DEPRESSIVE SYMPTOM [None]
  - GASTROOESOPHAGEAL REFLUX DISEASE [None]
  - HYPERTENSION [None]
  - IRON DEFICIENCY ANAEMIA [None]
  - MENOPAUSAL SYMPTOMS [None]
  - MIGRAINE [None]
  - MUSCULOSKELETAL STIFFNESS [None]
  - POLYCYSTIC OVARIES [None]
  - UTERINE LEIOMYOMA [None]
